FAERS Safety Report 10993795 (Version 1)
Quarter: 2015Q2

REPORT INFORMATION
  Report Type: Other
  Country: US (occurrence: US)
  Receive Date: 20150407
  Receipt Date: 20150407
  Transmission Date: 20150821
  Serious: No
  Sender: FDA-Public Use
  Company Number: US-LUPIN PHARMACEUTICALS INC.-E2B_00003247

PATIENT
  Sex: Female
  Weight: 62.65 kg

DRUGS (3)
  1. DULOXETINE DELAYED-RELEASE 30 MG CAPSULES USP [Suspect]
     Active Substance: DULOXETINE
     Indication: DEPRESSION
     Dates: start: 201404
  2. DULOXETINE DELAYED-RELEASE 30 MG CAPSULES USP [Suspect]
     Active Substance: DULOXETINE
     Indication: BACK PAIN
  3. VITAMIN D [Concomitant]
     Active Substance: CHOLECALCIFEROL
     Indication: PRODUCT USED FOR UNKNOWN INDICATION
     Route: 065

REACTIONS (4)
  - Epinephrine increased [Recovered/Resolved]
  - Hyperhidrosis [Recovered/Resolved]
  - Product substitution issue [Recovered/Resolved]
  - Insomnia [Recovered/Resolved]
